FAERS Safety Report 15763300 (Version 2)
Quarter: 2018Q4

REPORT INFORMATION
  Report Type: Spontaneous
  Country: US (occurrence: US)
  Receive Date: 20181227
  Receipt Date: 20181231
  Transmission Date: 20190205
  Serious: Yes (Other)
  Sender: FDA-Public Use
  Company Number: US-AUROBINDO-AUR-APL-2018-061058

PATIENT
  Age: 74 Year
  Sex: Female
  Weight: 170 kg

DRUGS (2)
  1. ZOLPIDEM TARTRATE TABLETS 10 MG [Suspect]
     Active Substance: ZOLPIDEM TARTRATE
     Indication: INSOMNIA
     Dosage: HALF TABLET PER DAY
     Route: 065
     Dates: start: 20181210
  2. ZOLPIDEM TARTRATE TABLETS 10 MG [Suspect]
     Active Substance: ZOLPIDEM TARTRATE
     Dosage: 1 TABLET PER DAY
     Route: 065
     Dates: start: 20181213

REACTIONS (4)
  - Feeling abnormal [Not Recovered/Not Resolved]
  - Starvation [Not Recovered/Not Resolved]
  - Underdose [Unknown]
  - Mood altered [Not Recovered/Not Resolved]

NARRATIVE: CASE EVENT DATE: 20181214
